FAERS Safety Report 14940903 (Version 1)
Quarter: 2018Q2

REPORT INFORMATION
  Report Type: Spontaneous
  Country: IT (occurrence: IT)
  Receive Date: 20180525
  Receipt Date: 20180525
  Transmission Date: 20180711
  Serious: Yes (Life-Threatening, Other)
  Sender: FDA-Public Use
  Company Number: IT-GILEAD-2018-0340404

PATIENT
  Age: 46 Year
  Sex: Male

DRUGS (3)
  1. EPCLUSA [Suspect]
     Active Substance: SOFOSBUVIR\VELPATASVIR
     Indication: CHRONIC HEPATITIS C
     Dosage: 2 DF, QD
     Route: 048
     Dates: start: 20180310, end: 20180326
  2. RAMIPRIL. [Concomitant]
     Active Substance: RAMIPRIL
     Dosage: 10 MG, QD
  3. RIBAVIRIN. [Concomitant]
     Active Substance: RIBAVIRIN
     Dosage: 800 MG, QD

REACTIONS (2)
  - Hepatitis acute [Not Recovered/Not Resolved]
  - Overdose [Not Recovered/Not Resolved]

NARRATIVE: CASE EVENT DATE: 20180407
